FAERS Safety Report 15330021 (Version 1)
Quarter: 2018Q3

REPORT INFORMATION
  Report Type: Spontaneous
  Country: DE (occurrence: DE)
  Receive Date: 20180829
  Receipt Date: 20180829
  Transmission Date: 20181010
  Serious: Yes (Life-Threatening, Other)
  Sender: FDA-Public Use
  Company Number: PHHY2018DE079242

PATIENT
  Age: 66 Year
  Sex: Male

DRUGS (3)
  1. ASPIRIN. [Suspect]
     Active Substance: ASPIRIN
     Indication: PERIPHERAL ARTERIAL OCCLUSIVE DISEASE
     Dosage: 100 MG, QD
     Route: 048
     Dates: end: 20180316
  2. HEPARIN [Suspect]
     Active Substance: HEPARIN SODIUM
     Indication: ARTERIAL BYPASS OCCLUSION
     Dosage: 900 IE/U FOR 6 HOURS
     Route: 042
  3. ACTILYSE [Suspect]
     Active Substance: ALTEPLASE
     Indication: ARTERIAL BYPASS OCCLUSION
     Dosage: 1 MG, 1 HOUR
     Route: 013
     Dates: start: 20180316, end: 20180316

REACTIONS (5)
  - Hemiplegia [Unknown]
  - Facial paresis [Unknown]
  - Off label use [Unknown]
  - Subarachnoid haemorrhage [Recovered/Resolved]
  - Ventricular dysfunction [Unknown]

NARRATIVE: CASE EVENT DATE: 20180316
